FAERS Safety Report 19475886 (Version 1)
Quarter: 2021Q2

REPORT INFORMATION
  Report Type: Report from Study
  Country: ES (occurrence: ES)
  Receive Date: 20210630
  Receipt Date: 20210630
  Transmission Date: 20210717
  Serious: Yes (Other)
  Sender: FDA-Public Use
  Company Number: ES-SUN PHARMACEUTICAL INDUSTRIES LTD-2021RR-302447

PATIENT
  Age: 91 Year
  Sex: Female

DRUGS (16)
  1. SONIDEGIB [Suspect]
     Active Substance: SONIDEGIB
     Indication: BASAL CELL CARCINOMA
     Dosage: 200 MILLIGRAM, DAILY
     Route: 048
     Dates: start: 20210219
  2. FUROSEMIDE. [Concomitant]
     Active Substance: FUROSEMIDE
     Indication: PRE-EXISTING DISEASE
     Dosage: 40 MILLIGRAM, DAILY
     Route: 048
     Dates: start: 20200207
  3. COLECALCIFEROL [Concomitant]
     Active Substance: CHOLECALCIFEROL
     Indication: PRE-EXISTING DISEASE
     Dosage: 400 INTERNATIONAL UNIT, DAILY
     Route: 048
     Dates: start: 20190221
  4. WARFARIN [Concomitant]
     Active Substance: WARFARIN
     Indication: PRE-EXISTING DISEASE
     Dosage: 12 MILLIGRAM, WEEKLY
     Route: 048
     Dates: start: 20170623
  5. OMEPRAZOLE. [Concomitant]
     Active Substance: OMEPRAZOLE
     Indication: PROPHYLAXIS
     Dosage: 20 MILLIGRAM, DAILY
     Route: 048
  6. HYDROCHLOROTHIAZIDE. [Concomitant]
     Active Substance: HYDROCHLOROTHIAZIDE
     Indication: PRE-EXISTING DISEASE
     Dosage: 25 MILLIGRAM, DAILY
     Route: 048
  7. VALSARTAN. [Concomitant]
     Active Substance: VALSARTAN
     Indication: PRE-EXISTING DISEASE
     Dosage: 320 MILLIGRAM, DAILY
     Route: 048
  8. REPAGLINED [Concomitant]
     Indication: PRE-EXISTING DISEASE
     Dosage: 0.5 MILLIGRAM, TID
     Route: 048
     Dates: start: 20200824
  9. PARACETAMOL [Concomitant]
     Active Substance: ACETAMINOPHEN
     Indication: PRE-EXISTING DISEASE
     Dosage: 650 MILLIGRAMS, UNK
     Route: 048
     Dates: start: 20160329
  10. AMLODIPINE [Concomitant]
     Active Substance: AMLODIPINE BESYLATE
     Indication: PRE-EXISTING DISEASE
     Dosage: 5 MILLIGRAM, DAILY
     Route: 048
     Dates: start: 20181129
  11. DIAZEPAM. [Concomitant]
     Active Substance: DIAZEPAM
     Indication: PRE-EXISTING DISEASE
     Dosage: 2.5 MILLIGRAM, DAILY
     Route: 048
     Dates: start: 20210111
  12. DIGOXIN 2.7 MIL WEEKLY ORAL, 02?12?2015 [Concomitant]
     Indication: PRE-EXISTING DISEASE
     Dosage: 2.7 MILLIGRAM, WEEKLY
     Route: 048
     Dates: start: 20151202
  13. INSULIN GLARGINE [Concomitant]
     Active Substance: INSULIN GLARGINE
     Indication: PRE-EXISTING DISEASE
     Dosage: 4 INTERNATIONAL UNIT, DAILY
     Route: 058
     Dates: start: 20200504
  14. URSODESOXYCHOLIC ACID [Concomitant]
     Active Substance: URSODIOL
     Indication: PRE-EXISTING DISEASE
     Dosage: 300 MILLIGRAM, TID
     Route: 048
     Dates: start: 20200506
  15. CALCIUM CARBONATE. [Concomitant]
     Active Substance: CALCIUM CARBONATE
     Indication: PRE-EXISTING DISEASE
     Dosage: 1500 MILLIGRAM, DAILY
     Route: 048
     Dates: start: 20190221
  16. TRAMADOL. [Concomitant]
     Active Substance: TRAMADOL
     Indication: PRE-EXISTING DISEASE
     Dosage: 75 MIL ORAL
     Route: 048
     Dates: start: 20181129

REACTIONS (3)
  - Muscle spasms [Not Recovered/Not Resolved]
  - Fatigue [Not Recovered/Not Resolved]
  - Conjunctivitis [Recovered/Resolved]

NARRATIVE: CASE EVENT DATE: 20210315
